FAERS Safety Report 9334213 (Version 1)
Quarter: 2013Q2

REPORT INFORMATION
  Report Type: Spontaneous
  Country: US (occurrence: US)
  Receive Date: 20130606
  Receipt Date: 20130606
  Transmission Date: 20140414
  Serious: No
  Sender: FDA-Public Use
  Company Number: US-AMGEN-USASP2013017786

PATIENT
  Age: 75 Year
  Sex: Female

DRUGS (13)
  1. PROLIA [Suspect]
     Indication: OSTEOPOROSIS POSTMENOPAUSAL
     Dosage: UNK
     Dates: start: 20130131
  2. TRICOR                             /00090101/ [Concomitant]
  3. METFORMIN [Concomitant]
  4. ZETIA [Concomitant]
  5. PIOGLITAZONE [Concomitant]
  6. LISINOPRIL [Concomitant]
  7. GLUCOTROL [Concomitant]
  8. CALCIUM [Concomitant]
  9. FISH OIL [Concomitant]
  10. NIACIN [Concomitant]
  11. VITAMIN D3 [Concomitant]
  12. ASPIRIN [Concomitant]
     Dosage: 81 MG, UNK
  13. MULTIVITAMIN                       /00097801/ [Concomitant]

REACTIONS (4)
  - Abdominal discomfort [Not Recovered/Not Resolved]
  - Arthralgia [Unknown]
  - Abdominal pain upper [Unknown]
  - Back pain [Unknown]
